FAERS Safety Report 9745770 (Version 5)
Quarter: 2014Q1

REPORT INFORMATION
  Report Type: Spontaneous
  Country: IT (occurrence: IT)
  Receive Date: 20131211
  Receipt Date: 20140311
  Transmission Date: 20141002
  Serious: Yes (Hospitalization)
  Sender: FDA-Public Use
  Company Number: PHHY2013IT142374

PATIENT
  Age: 85 Year
  Sex: Female

DRUGS (8)
  1. AMIODARONE [Suspect]
     Indication: ATRIAL TACHYCARDIA
     Dosage: 1 DF, QD
     Route: 048
     Dates: start: 20130101, end: 20131030
  2. BISOPROLOL [Suspect]
     Indication: HYPERTENSION
     Dosage: 2.5 MG, QD
     Route: 048
     Dates: start: 20130101, end: 20131030
  3. COUMADIN//WARFARIN SODIUM [Concomitant]
     Indication: EMBOLISM
     Dosage: 5 MG
     Route: 048
     Dates: start: 20130101, end: 20131030
  4. LASIX [Concomitant]
     Dosage: 125 MG, UNK
     Dates: start: 20130101, end: 20131030
  5. LASIX [Concomitant]
     Dosage: 250 MG
  6. EUTIROX [Concomitant]
     Indication: HYPOTHYROIDISM
     Dosage: 50 UG, UNK
     Route: 048
     Dates: start: 20130101, end: 20131030
  7. OMEPRAZOLE [Concomitant]
     Dosage: 20 MG, UNK
     Route: 048
     Dates: start: 20130101, end: 20131030
  8. SERTRALINE [Concomitant]
     Route: 048
     Dates: start: 20130101, end: 20131030

REACTIONS (3)
  - Renal failure acute [Recovered/Resolved]
  - Oedema peripheral [Recovered/Resolved]
  - Pain [Recovered/Resolved]
